FAERS Safety Report 17549336 (Version 1)
Quarter: 2020Q1

REPORT INFORMATION
  Report Type: Spontaneous
  Country: US (occurrence: US)
  Receive Date: 20200306
  Receipt Date: 20200306
  Transmission Date: 20200409
  Serious: Yes (Life-Threatening)
  Sender: FDA-Public Use
  Company Number: None

PATIENT
  Age: 76 Year
  Sex: Male
  Weight: 61 kg

DRUGS (1)
  1. DOFETILIDE (DOFETILIDE 500MCG CAP) [Suspect]
     Active Substance: DOFETILIDE
     Route: 048
     Dates: start: 20180430, end: 20180502

REACTIONS (3)
  - Sinus bradycardia [None]
  - Torsade de pointes [None]
  - Dizziness [None]

NARRATIVE: CASE EVENT DATE: 20180502
